FAERS Safety Report 11443606 (Version 1)
Quarter: 2015Q3

REPORT INFORMATION
  Report Type: Spontaneous
  Country: FR (occurrence: FR)
  Receive Date: 20150901
  Receipt Date: 20150901
  Transmission Date: 20151125
  Serious: Yes (Congenital Anomaly)
  Sender: FDA-Public Use
  Company Number: FR-ABBVIE-15P-056-1454126-00

PATIENT
  Sex: Female

DRUGS (1)
  1. DEPAKINE CHRONO [Suspect]
     Active Substance: VALPROATE SODIUM
     Indication: MATERNAL EXPOSURE TIMING UNSPECIFIED
     Route: 064

REACTIONS (10)
  - Arthropathy [Unknown]
  - Foetal exposure during pregnancy [Unknown]
  - Dysmorphism [Unknown]
  - Osteochondritis [Unknown]
  - Deafness [Unknown]
  - Congenital hand malformation [Unknown]
  - Carpal tunnel syndrome [Unknown]
  - Lordosis [Unknown]
  - Foetal anticonvulsant syndrome [Unknown]
  - Attention deficit/hyperactivity disorder [Unknown]
